FAERS Safety Report 7620611-X (Version None)
Quarter: 2011Q3

REPORT INFORMATION
  Report Type: 
  Country: None (occurrence: None)
  Receive Date: 20110719
  Receipt Date: 20110705
  Transmission Date: 20111222
  Serious: Yes (Hospitalization)
  Sender: FDA-Public Use
  Company Number: RU-SANOFI-AVENTIS-2011SA044158

PATIENT
  Age: 70 Year
  Sex: Female
  Weight: 104 kg

DRUGS (8)
  1. GLIMEPIRIDE [Concomitant]
  2. DIGOXIN [Concomitant]
     Dates: start: 20110526, end: 20110615
  3. BISOPROLOL [Concomitant]
     Dates: start: 20110625
  4. DRONEDARONE HCL [Suspect]
     Indication: ATRIAL FIBRILLATION
     Route: 048
     Dates: start: 20110225, end: 20110615
  5. BISOPROLOL [Concomitant]
     Dates: end: 20110615
  6. THIAZIDES [Concomitant]
  7. WARFARIN SODIUM [Concomitant]
  8. SIMVASTATIN [Concomitant]

REACTIONS (2)
  - ANGINA UNSTABLE [None]
  - BRADYARRHYTHMIA [None]
